FAERS Safety Report 7932627-4 (Version None)
Quarter: 2011Q4

REPORT INFORMATION
  Report Type: 
  Country: None (occurrence: None)
  Receive Date: 20111122
  Receipt Date: 20111117
  Transmission Date: 20120403
  Serious: No
  Sender: FDA-Public Use
  Company Number: US-BIOGENIDEC-2011BI044136

PATIENT
  Age: 28 Year
  Sex: Female

DRUGS (5)
  1. AVONEX [Suspect]
     Route: 030
  2. IBUPROFEN [Concomitant]
     Indication: PREMEDICATION
  3. AVONEX [Suspect]
     Route: 030
  4. AVONEX [Suspect]
     Indication: MULTIPLE SCLEROSIS
     Route: 030
     Dates: start: 20111101
  5. AVONEX [Suspect]
     Route: 030
     Dates: start: 20111012

REACTIONS (7)
  - INJECTION SITE HAEMORRHAGE [None]
  - MENORRHAGIA [None]
  - INJECTION SITE PAIN [None]
  - DYSMENORRHOEA [None]
  - FEELING ABNORMAL [None]
  - INFLUENZA LIKE ILLNESS [None]
  - INJECTION SITE HAEMATOMA [None]
